FAERS Safety Report 10230229 (Version 1)
Quarter: 2014Q2

REPORT INFORMATION
  Report Type: Spontaneous
  Country: US (occurrence: US)
  Receive Date: 20140611
  Receipt Date: 20140611
  Transmission Date: 20141212
  Serious: Yes (Other)
  Sender: FDA-Public Use
  Company Number: US-PFIZER INC-2014156636

PATIENT
  Age: 83 Year
  Sex: Female
  Weight: 176.87 kg

DRUGS (8)
  1. METFORMIN HCL [Suspect]
     Indication: DIABETES MELLITUS
     Dosage: UNK
  2. GLIPIZIDE [Suspect]
     Indication: DIABETES MELLITUS
     Dosage: UNK
  3. INSULIN [Suspect]
     Indication: DIABETES MELLITUS
     Dosage: UNK
  4. RAMIPRIL [Concomitant]
     Indication: ABDOMINAL DISCOMFORT
     Dosage: UNK
  5. LISINOPRIL [Concomitant]
     Indication: HYPERTENSION
     Dosage: UNK
  6. SIMVASTATIN [Concomitant]
     Indication: BLOOD CHOLESTEROL INCREASED
     Dosage: UNK
  7. CELEBREX [Concomitant]
     Indication: ARTHRITIS
     Dosage: 200 MG, 1X/DAY
     Route: 048
  8. TOLTERODINE [Concomitant]
     Indication: INCONTINENCE
     Dosage: 4 MG, 1X/DAY
     Route: 048

REACTIONS (1)
  - Diabetes mellitus inadequate control [Unknown]
